FAERS Safety Report 4476394-8 (Version None)
Quarter: 2004Q4

REPORT INFORMATION
  Report Type: 
  Country: None (occurrence: None)
  Receive Date: 20041016
  Receipt Date: 20041007
  Transmission Date: 20050328
  Serious: Yes (Hospitalization, Other)
  Sender: FDA-Public Use
  Company Number: US-MERCK-0410USA01228

PATIENT
  Age: 44 Year
  Sex: Female

DRUGS (2)
  1. TOPROL-XL [Concomitant]
     Route: 065
  2. VIOXX [Suspect]
     Indication: CHONDROMALACIA
     Route: 048
     Dates: start: 20020101, end: 20040801

REACTIONS (3)
  - COLITIS ISCHAEMIC [None]
  - EXTRASYSTOLES [None]
  - PALPITATIONS [None]
